FAERS Safety Report 5822215-8 (Version None)
Quarter: 2008Q3

REPORT INFORMATION
  Report Type: 
  Country: None (occurrence: None)
  Receive Date: 20080723
  Receipt Date: 20080723
  Transmission Date: 20090109
  Serious: Yes (Life-Threatening, Hospitalization, Other)
  Sender: FDA-Public Use
  Company Number: None

PATIENT
  Sex: Female
  Weight: 79.3795 kg

DRUGS (1)
  1. LITHOBID [Suspect]
     Indication: BIPOLAR DISORDER
     Dosage: 300 MG TWICE A DAY PO
     Route: 048
     Dates: start: 20080506, end: 20080626

REACTIONS (9)
  - ABASIA [None]
  - BRAIN INJURY [None]
  - CONVULSION [None]
  - DYSKINESIA [None]
  - LETHARGY [None]
  - MOVEMENT DISORDER [None]
  - PSYCHOMOTOR HYPERACTIVITY [None]
  - SEDATION [None]
  - SPEECH DISORDER [None]
